FAERS Safety Report 21651828 (Version 1)
Quarter: 2022Q4

REPORT INFORMATION
  Report Type: Spontaneous
  Country: US (occurrence: US)
  Receive Date: 20221128
  Receipt Date: 20221128
  Transmission Date: 20230113
  Serious: No
  Sender: FDA-Public Use
  Company Number: US-CHIESI-2022CHF01004

PATIENT
  Age: 31 Year
  Sex: Male

DRUGS (3)
  1. REVCOVI [Suspect]
     Active Substance: ELAPEGADEMASE-LVLR
     Indication: Combined immunodeficiency
     Dosage: 10.8 MG 2 TIMES PER WEEK (4 VIALS ON MONDAY AND 5 VIALS ON THURSDAY)
     Route: 030
     Dates: start: 20210804
  2. REVCOVI [Suspect]
     Active Substance: ELAPEGADEMASE-LVLR
     Dosage: 10.8 MG TWO TIMES PER WEEK
     Route: 030
     Dates: start: 20210730
  3. VITAMINS NOS [Concomitant]
     Active Substance: VITAMINS
     Indication: Product used for unknown indication
     Dosage: UNK
     Route: 065

REACTIONS (1)
  - COVID-19 [Recovered/Resolved]

NARRATIVE: CASE EVENT DATE: 20220219
